FAERS Safety Report 5352023-6 (Version None)
Quarter: 2007Q2

REPORT INFORMATION
  Report Type: 
  Country: None (occurrence: None)
  Receive Date: 20070611
  Receipt Date: 20070602
  Transmission Date: 20071010
  Serious: Yes (Other)
  Sender: FDA-Public Use
  Company Number: PHHO2007GB08555

PATIENT

DRUGS (1)
  1. ZOLEDRONIC ACID [Suspect]
     Route: 065

REACTIONS (1)
  - OSTEONECROSIS [None]
